FAERS Safety Report 7645471-2 (Version None)
Quarter: 2011Q3

REPORT INFORMATION
  Report Type: 
  Country: None (occurrence: None)
  Receive Date: 20110729
  Receipt Date: 20110718
  Transmission Date: 20111222
  Serious: No
  Sender: FDA-Public Use
  Company Number: CA-ELI_LILLY_AND_COMPANY-CA201107004720

PATIENT
  Sex: Female
  Weight: 87.982 kg

DRUGS (15)
  1. MIRTAZAPINE [Concomitant]
  2. LORAZEPAM [Concomitant]
  3. QUETIAPINE [Concomitant]
  4. BUPROPION HCL [Concomitant]
  5. RISPERDAL [Concomitant]
  6. AMITRIPTYLINE HCL [Concomitant]
  7. ZYPREXA [Suspect]
     Dosage: 2.5 MG, UNK
  8. ZYPREXA ZYDIS [Suspect]
     Dosage: 10 MG, QD
  9. LOXAPINE HCL [Concomitant]
  10. METHYLPHENIDATE [Concomitant]
  11. ZYPREXA [Suspect]
     Dosage: 5 MG, QD
  12. TRAZODONE HCL [Concomitant]
  13. CELEXA [Concomitant]
  14. METOCLOPRAMIDE [Concomitant]
  15. ZYPREXA ZYDIS [Suspect]
     Dosage: 5 MG, UNK

REACTIONS (6)
  - DYSLIPIDAEMIA [None]
  - ANAEMIA VITAMIN B12 DEFICIENCY [None]
  - WHITE BLOOD CELL COUNT INCREASED [None]
  - HYPOAESTHESIA [None]
  - TRANSAMINASES ABNORMAL [None]
  - DIABETES MELLITUS [None]
